FAERS Safety Report 12801827 (Version 1)
Quarter: 2016Q3

REPORT INFORMATION
  Report Type: Spontaneous
  Country: US (occurrence: US)
  Receive Date: 20160930
  Receipt Date: 20160930
  Transmission Date: 20161109
  Serious: No
  Sender: FDA-Public Use
  Company Number: None

PATIENT
  Age: 44 Year
  Sex: Female
  Weight: 65.7 kg

DRUGS (2)
  1. HYOSCYAMINE 0.125 MG SUBL VIRTUS PHARMACEUTICALS [Suspect]
     Active Substance: HYOSCYAMINE SULFATE
     Indication: GASTROINTESTINAL PAIN
     Dosage: ?          QUANTITY:60 TABLET(S);?
     Route: 060
     Dates: start: 20160720, end: 20160925
  2. CELEXA [Concomitant]
     Active Substance: CITALOPRAM HYDROBROMIDE

REACTIONS (2)
  - Cardiac flutter [None]
  - Product use issue [None]

NARRATIVE: CASE EVENT DATE: 20160913
